FAERS Safety Report 7325037-4 (Version None)
Quarter: 2011Q1

REPORT INFORMATION
  Report Type: 
  Country: None (occurrence: None)
  Receive Date: 20110302
  Receipt Date: 20110216
  Transmission Date: 20110831
  Serious: Yes (Other)
  Sender: FDA-Public Use
  Company Number: BE-BAYER-2011-014717

PATIENT
  Age: 60 Year
  Sex: Male

DRUGS (2)
  1. LEVITRA [Suspect]
     Dosage: UNK
     Route: 048
  2. LEVITRA [Suspect]
     Indication: PRODUCT USED FOR UNKNOWN INDICATION
     Dosage: UNK
     Route: 048

REACTIONS (1)
  - CHROMATOPSIA [None]
